FAERS Safety Report 16776842 (Version 1)
Quarter: 2019Q4

REPORT INFORMATION
  Report Type: Spontaneous
  Country: US (occurrence: US)
  Receive Date: 20190905
  Receipt Date: 20190905
  Transmission Date: 20200122
  Serious: No
  Sender: FDA-Public Use
  Company Number: None

PATIENT
  Age: 37 Year
  Sex: Female

DRUGS (2)
  1. FOLLISTIM [Suspect]
     Active Substance: FOLLITROPIN
     Indication: INFERTILITY
     Dosage: INTRAMUSCULAR USE AS DIRECTED
     Route: 030
     Dates: start: 20190802
  2. FOLLISTIM [Concomitant]
     Active Substance: FOLLITROPIN
     Dates: start: 20190802

REACTIONS (1)
  - Injection site rash [None]

NARRATIVE: CASE EVENT DATE: 20190904
